FAERS Safety Report 5519220-8 (Version None)
Quarter: 2007Q4

REPORT INFORMATION
  Report Type: 
  Country: None (occurrence: None)
  Receive Date: 20071116
  Receipt Date: 20071112
  Transmission Date: 20080405
  Serious: Yes (Death, Hospitalization, Other)
  Sender: FDA-Public Use
  Company Number: US-AVENTIS-200720407GDDC

PATIENT
  Age: 50 Year
  Sex: Female
  Weight: 120.2 kg

DRUGS (2)
  1. TAXOTERE [Suspect]
     Route: 042
  2. VELCADE [Suspect]
     Route: 042

REACTIONS (3)
  - DRY MOUTH [None]
  - MUCOSAL INFLAMMATION [None]
  - SUDDEN CARDIAC DEATH [None]
